FAERS Safety Report 15236459 (Version 1)
Quarter: 2018Q3

REPORT INFORMATION
  Report Type: Spontaneous
  Country: US (occurrence: US)
  Receive Date: 20180709
  Receipt Date: 20180709
  Transmission Date: 20181010
  Serious: No
  Sender: FDA-Public Use
  Company Number: None

PATIENT
  Age: 45 Year
  Sex: Male
  Weight: 147.42 kg

DRUGS (2)
  1. KLONOPNI [Concomitant]
  2. DESVENLAFAXINE GENERIC PRISTIQ 100MG [Suspect]
     Active Substance: DESVENLAFAXINE
     Indication: MAJOR DEPRESSION
     Route: 048
     Dates: start: 20170318

REACTIONS (4)
  - Abnormal behaviour [None]
  - Anxiety [None]
  - Disorientation [None]
  - Mental status changes [None]

NARRATIVE: CASE EVENT DATE: 20170318
